FAERS Safety Report 22976679 (Version 2)
Quarter: 2024Q4

REPORT INFORMATION
  Report Type: Report from Study
  Country: US (occurrence: US)
  Receive Date: 20230925
  Receipt Date: 20241104
  Transmission Date: 20250115
  Serious: Yes (Hospitalization)
  Sender: ROCHE
  Company Number: US-ROCHE-2622736

PATIENT
  Age: 71 Year
  Sex: Male

DRUGS (15)
  1. CELLCEPT [Suspect]
     Active Substance: MYCOPHENOLATE MOFETIL
     Indication: Renal transplant
     Route: 048
  2. CELLCEPT [Suspect]
     Active Substance: MYCOPHENOLATE MOFETIL
     Indication: Chronic kidney disease
  3. COREG [Concomitant]
     Active Substance: CARVEDILOL
  4. CLONIDINE [Concomitant]
     Active Substance: CLONIDINE
  5. BUMETANIDE [Concomitant]
     Active Substance: BUMETANIDE
  6. RAPAMUNE [Concomitant]
     Active Substance: SIROLIMUS
  7. POTASSIUM CHLORIDE [Concomitant]
     Active Substance: POTASSIUM CHLORIDE
  8. BASAGLAR [Concomitant]
     Active Substance: INSULIN GLARGINE
  9. HUMALOG [Concomitant]
     Active Substance: INSULIN LISPRO
  10. AMOXICILLIN [Concomitant]
     Active Substance: AMOXICILLIN
  11. FERROUS SULFATE [Concomitant]
     Active Substance: FERROUS SULFATE
  12. OMEGA 3 [Concomitant]
     Active Substance: CAPSAICIN
  13. CRESTOR [Concomitant]
     Active Substance: ROSUVASTATIN CALCIUM
  14. PROTONIX DR [Concomitant]
  15. NORVASC [Concomitant]
     Active Substance: AMLODIPINE BESYLATE

REACTIONS (6)
  - Upper respiratory tract infection [Recovered/Resolved]
  - Infective exacerbation of asthma [Recovered/Resolved]
  - Dry mouth [Unknown]
  - Vitamin D deficiency [Unknown]
  - Herpes zoster [Unknown]
  - Stress [Unknown]

NARRATIVE: CASE EVENT DATE: 20181001
